FAERS Safety Report 24972597 (Version 2)
Quarter: 2025Q1

REPORT INFORMATION
  Report Type: Spontaneous
  Country: PT (occurrence: PT)
  Receive Date: 20250215
  Receipt Date: 20250327
  Transmission Date: 20250408
  Serious: Yes (Death, Hospitalization, Other)
  Sender: MERCK SHARP & DOHME LLC
  Company Number: PT-009507513-2254214

PATIENT
  Age: 79 Year
  Sex: Male

DRUGS (7)
  1. PEMBROLIZUMAB [Suspect]
     Active Substance: PEMBROLIZUMAB
     Route: 065
     Dates: start: 20250114
  2. LOSARTAN [Concomitant]
     Active Substance: LOSARTAN
  3. HYDROCHLOROTHIAZIDE [Concomitant]
     Active Substance: HYDROCHLOROTHIAZIDE
  4. SIMVASTATIN [Concomitant]
     Active Substance: SIMVASTATIN
  5. SIMVASTATIN [Concomitant]
     Active Substance: SIMVASTATIN
  6. ESCITALOPRAM [Concomitant]
     Active Substance: ESCITALOPRAM OXALATE
  7. ATARAX [Concomitant]
     Active Substance: HYDROXYZINE HYDROCHLORIDE

REACTIONS (6)
  - Death [Fatal]
  - Pulmonary mass [Unknown]
  - Interstitial lung disease [Unknown]
  - Severe acute respiratory syndrome [Unknown]
  - Pneumonitis [Unknown]
  - Pulmonary fibrosis [Unknown]

NARRATIVE: CASE EVENT DATE: 20250207
